FAERS Safety Report 20785776 (Version 1)
Quarter: 2022Q2

REPORT INFORMATION
  Report Type: Spontaneous
  Country: US (occurrence: None)
  Receive Date: 20220504
  Receipt Date: 20220504
  Transmission Date: 20220721
  Serious: No
  Sender: FDA-Public Use
  Company Number: US-ROCHE-2875089

PATIENT
  Sex: Female
  Weight: 93.070 kg

DRUGS (3)
  1. OCREVUS [Suspect]
     Active Substance: OCRELIZUMAB
     Indication: Relapsing-remitting multiple sclerosis
     Route: 042
     Dates: start: 20210615
  2. REBIF [Concomitant]
     Active Substance: INTERFERON BETA-1A
  3. AUBAGIO [Concomitant]
     Active Substance: TERIFLUNOMIDE

REACTIONS (2)
  - Energy increased [Not Recovered/Not Resolved]
  - Sleep disorder [Not Recovered/Not Resolved]
